FAERS Safety Report 25525043 (Version 3)
Quarter: 2025Q3

REPORT INFORMATION
  Report Type: Spontaneous
  Country: US (occurrence: US)
  Receive Date: 20250707
  Receipt Date: 20250905
  Transmission Date: 20251020
  Serious: No
  Sender: SANOFI AVENTIS
  Company Number: US-SA-2025SA189449

PATIENT
  Sex: Female
  Weight: 37.27 kg

DRUGS (27)
  1. DUPIXENT [Suspect]
     Active Substance: DUPILUMAB
     Indication: Eosinophilic oesophagitis
     Dosage: 300 MG, QW
     Route: 058
  2. DUPIXENT [Suspect]
     Active Substance: DUPILUMAB
     Indication: Immunodeficiency common variable
     Dosage: 300 MG, QOW
     Route: 058
  3. DUPIXENT [Suspect]
     Active Substance: DUPILUMAB
     Indication: Product used for unknown indication
  4. HIZENTRA [Suspect]
     Active Substance: HUMAN IMMUNOGLOBULIN G
     Dosage: 6 GM QW
  5. HIZENTRA [Suspect]
     Active Substance: HUMAN IMMUNOGLOBULIN G
     Dosage: 8 GM QW
  6. EPINEPHRINE [Concomitant]
     Active Substance: EPINEPHRINE
  7. LIDOCAINE [Concomitant]
     Active Substance: LIDOCAINE
  8. ACETAMINOPHEN [Concomitant]
     Active Substance: ACETAMINOPHEN
  9. DIPHENHYDRAMINE [Concomitant]
     Active Substance: DIPHENHYDRAMINE
  10. CETIRIZINE HYDROCHLORIDE [Concomitant]
     Active Substance: CETIRIZINE HYDROCHLORIDE
  11. CYPROHEPTADINE HYDROCHLORIDE [Concomitant]
     Active Substance: CYPROHEPTADINE HYDROCHLORIDE
  12. MELATONIN [Concomitant]
     Active Substance: MELATONIN
  13. ONDANSETRON HYDROCHLORIDE [Concomitant]
     Active Substance: ONDANSETRON HYDROCHLORIDE
  14. ALBUTEROL SULFATE [Concomitant]
     Active Substance: ALBUTEROL SULFATE
  15. BUDESONIDE [Concomitant]
     Active Substance: BUDESONIDE
  16. VITAMINS [Concomitant]
     Active Substance: VITAMINS
  17. LORATADINE [Concomitant]
     Active Substance: LORATADINE
  18. FERROUS SULFATE [Concomitant]
     Active Substance: FERROUS SULFATE
  19. ZONISADE [Concomitant]
     Active Substance: ZONISAMIDE
  20. SENNA [Concomitant]
     Active Substance: SENNOSIDES
  21. MIRALAX [Concomitant]
     Active Substance: POLYETHYLENE GLYCOL 3350
  22. OMEPRAZOLE [Concomitant]
     Active Substance: OMEPRAZOLE
  23. ERYTHROMYCIN ETHYLSUCCINATE [Concomitant]
     Active Substance: ERYTHROMYCIN ETHYLSUCCINATE
  24. GABAPENTIN [Concomitant]
     Active Substance: GABAPENTIN
  25. GUANFACINE HYDROCHLORIDE [Concomitant]
     Active Substance: GUANFACINE HYDROCHLORIDE
  26. LINZESS [Concomitant]
     Active Substance: LINACLOTIDE
  27. FIBER THERAPY (CALCIUM POLYCARBOPHIL) [Concomitant]
     Active Substance: CALCIUM POLYCARBOPHIL

REACTIONS (4)
  - Fatigue [Unknown]
  - Infusion site nodule [Unknown]
  - Infusion site erythema [Unknown]
  - Product use in unapproved indication [Unknown]
